FAERS Safety Report 4302826-1 (Version None)
Quarter: 2004Q1

REPORT INFORMATION
  Report Type: 
  Country: None (occurrence: None)
  Receive Date: 20040223
  Receipt Date: 20040223
  Transmission Date: 20041129
  Serious: Yes (Other)
  Sender: FDA-Public Use
  Company Number: None

PATIENT
  Sex: Female

DRUGS (1)
  1. BUTALBITAL ACETAMINOPHEN + 50/325/40 MG ABLE LABORATORIES, INC [Suspect]
     Indication: TENSION HEADACHE
     Dates: start: 20011219, end: 20020119

REACTIONS (1)
  - PRURITUS [None]
